FAERS Safety Report 12427722 (Version 1)
Quarter: 2016Q2

REPORT INFORMATION
  Report Type: Spontaneous
  Country: US (occurrence: None)
  Receive Date: 20160601
  Receipt Date: 20160601
  Transmission Date: 20160815
  Serious: No
  Sender: FDA-Public Use
  Company Number: None

PATIENT
  Sex: Female

DRUGS (3)
  1. METFORMIN [Suspect]
     Active Substance: METFORMIN HYDROCHLORIDE
  2. TOUJEO [Suspect]
     Active Substance: INSULIN GLARGINE
  3. ZYRTEC [Suspect]
     Active Substance: CETIRIZINE HYDROCHLORIDE

REACTIONS (21)
  - Self-medication [None]
  - Respiratory disorder [None]
  - Malaise [None]
  - Menstrual disorder [None]
  - Emphysema [None]
  - Memory impairment [None]
  - Hypertension [None]
  - Drug monitoring procedure incorrectly performed [None]
  - Impaired gastric emptying [None]
  - Mental impairment [None]
  - Injection site mass [None]
  - Abdominal distension [None]
  - Blood glucose increased [None]
  - Injection site discolouration [None]
  - Frustration tolerance decreased [None]
  - Activities of daily living impaired [None]
  - Dyspnoea [None]
  - Drug ineffective [None]
  - Cardiac disorder [None]
  - Glycosylated haemoglobin increased [None]
  - Life support [None]
